FAERS Safety Report 14360636 (Version 1)
Quarter: 2018Q1

REPORT INFORMATION
  Report Type: Spontaneous
  Country: US (occurrence: US)
  Receive Date: 20180106
  Receipt Date: 20180106
  Transmission Date: 20180509
  Serious: Yes (Other)
  Sender: FDA-Public Use
  Company Number: US-FRESENIUS KABI-FK201800131

PATIENT
  Age: 22 Year
  Sex: Male

DRUGS (1)
  1. SODIUM CHLORIDE (MANUFACTURER UNKNOWN) [Suspect]
     Active Substance: SODIUM CHLORIDE
     Indication: PARAPHILIA
     Route: 058

REACTIONS (2)
  - Cellulitis of male external genital organ [Recovering/Resolving]
  - Drug abuse [Recovering/Resolving]
